FAERS Safety Report 6013053-4 (Version None)
Quarter: 2008Q4

REPORT INFORMATION
  Report Type: 
  Country: None (occurrence: None)
  Receive Date: 20081217
  Receipt Date: 20080714
  Transmission Date: 20090506
  Serious: Yes (Hospitalization)
  Sender: FDA-Public Use
  Company Number: 20080187 /

PATIENT
  Age: 20 Year
  Sex: Female
  Weight: 99 kg

DRUGS (3)
  1. NEOSTIGMINE METHYLSULFATE INJECTION, USP (0034-25) 0.5 MG/ML [Suspect]
     Indication: ANAESTHESIA REVERSAL
     Dosage: 3 MG X 1 INTRAVENOUS
     Route: 042
     Dates: start: 20080208, end: 20080208
  2. ROCURONIUM BROMIDE [Concomitant]
  3. SEVOFLURANE [Concomitant]

REACTIONS (3)
  - DRUG INEFFECTIVE [None]
  - GRIP STRENGTH DECREASED [None]
  - PRODUCT QUALITY ISSUE [None]
